FAERS Safety Report 18254004 (Version 1)
Quarter: 2020Q3

REPORT INFORMATION
  Report Type: Report from Study
  Country: US (occurrence: US)
  Receive Date: 20200910
  Receipt Date: 20200910
  Transmission Date: 20201103
  Serious: Yes (Hospitalization)
  Sender: FDA-Public Use
  Company Number: US-JNJFOC-20200902727

PATIENT
  Age: 66 Year
  Sex: Female

DRUGS (4)
  1. ORENITRAM [Suspect]
     Active Substance: TREPROSTINIL
  2. MACITENTAN [Suspect]
     Active Substance: MACITENTAN
     Indication: PULMONARY ARTERIAL HYPERTENSION
     Route: 048
     Dates: start: 20200219
  3. ORENITRAM [Suspect]
     Active Substance: TREPROSTINIL
     Route: 065
  4. ORENITRAM [Suspect]
     Active Substance: TREPROSTINIL
     Dosage: THE PLAN WILL BE TO TITRATE UP BY 0.125MG TID EVERY 5 DAYS UNTIL GOAL DOSE IS ACHIEVED.
     Route: 065

REACTIONS (4)
  - Blood potassium decreased [Unknown]
  - Dyspnoea [Unknown]
  - Renal disorder [Unknown]
  - Blood pressure decreased [Unknown]

NARRATIVE: CASE EVENT DATE: 20200821
